FAERS Safety Report 10109542 (Version 1)
Quarter: 2014Q2

REPORT INFORMATION
  Report Type: Spontaneous
  Country: US (occurrence: US)
  Receive Date: 20140425
  Receipt Date: 20140425
  Transmission Date: 20141212
  Serious: Yes (Other)
  Sender: FDA-Public Use
  Company Number: US-BAYER-2014-056188

PATIENT
  Age: 81 Year
  Sex: Male

DRUGS (1)
  1. CIPRO [Suspect]

REACTIONS (2)
  - Renal failure chronic [None]
  - White blood cells urine [None]
